FAERS Safety Report 14184907 (Version 1)
Quarter: 2017Q4

REPORT INFORMATION
  Report Type: Spontaneous
  Country: US (occurrence: US)
  Receive Date: 20171113
  Receipt Date: 20171113
  Transmission Date: 20180321
  Serious: Yes (Other)
  Sender: FDA-Public Use
  Company Number: US-IMPAX LABORATORIES, INC-2017-IPXL-03127

PATIENT
  Age: 55 Year
  Sex: Female

DRUGS (2)
  1. HYDROCORTISONE. [Suspect]
     Active Substance: HYDROCORTISONE
     Indication: PRODUCT USED FOR UNKNOWN INDICATION
     Dosage: UNK
     Route: 065
  2. BICARBONATE [Concomitant]
     Active Substance: BICARBONATE ION
     Indication: METABOLIC ACIDOSIS
     Dosage: BOLUS AND CONTINUOUS INFUSION, UNK
     Route: 042

REACTIONS (1)
  - Encephalopathy [Recovering/Resolving]
